FAERS Safety Report 20704436 (Version 3)
Quarter: 2022Q2

REPORT INFORMATION
  Report Type: Spontaneous
  Country: GB (occurrence: GB)
  Receive Date: 20220413
  Receipt Date: 20220509
  Transmission Date: 20220721
  Serious: Yes (Hospitalization)
  Sender: FDA-Public Use
  Company Number: GB-MYLANLABS-2022M1026666

PATIENT
  Age: 70 Year
  Sex: Female

DRUGS (14)
  1. FLUOROURACIL [Suspect]
     Active Substance: FLUOROURACIL
     Indication: Hormone receptor positive breast cancer
     Dosage: 500 MILLIGRAM/SQ. METER, 2 CYCLICAL
     Route: 065
     Dates: start: 2016
  2. FLUOROURACIL [Suspect]
     Active Substance: FLUOROURACIL
     Indication: Breast cancer
  3. EPIRUBICIN [Suspect]
     Active Substance: EPIRUBICIN
     Indication: Hormone receptor positive breast cancer
     Dosage: 100 MILLIGRAM/SQ. METER, 2 CYCLICAL
     Route: 065
     Dates: start: 2016
  4. EPIRUBICIN [Suspect]
     Active Substance: EPIRUBICIN
     Indication: Breast cancer
  5. APREPITANT [Interacting]
     Active Substance: APREPITANT
     Indication: Prophylaxis of nausea and vomiting
     Dosage: 125 MILLIGRAM, CYCLE
     Route: 065
     Dates: start: 2016, end: 2016
  6. APREPITANT [Interacting]
     Active Substance: APREPITANT
     Indication: Premedication
  7. CYCLOPHOSPHAMIDE [Interacting]
     Active Substance: CYCLOPHOSPHAMIDE
     Indication: Hormone receptor positive breast cancer
     Dosage: 500 MILLIGRAM/SQ. METER 2 CYCLICAL (LOWER-DOSE FIRST CYCLE OF NEOADJUVANT CHEMOTHERAPY)
     Route: 065
     Dates: start: 2016
  8. CYCLOPHOSPHAMIDE [Interacting]
     Active Substance: CYCLOPHOSPHAMIDE
     Indication: Breast cancer
  9. DEXAMETHASONE [Concomitant]
     Active Substance: DEXAMETHASONE
     Indication: Premedication
     Dosage: 8 MILLIGRAM
     Route: 065
     Dates: start: 2016
  10. DEXAMETHASONE [Concomitant]
     Active Substance: DEXAMETHASONE
     Indication: Supportive care
  11. ONDANSETRON [Concomitant]
     Active Substance: ONDANSETRON
     Indication: Premedication
     Dosage: 8 MILLIGRAM
     Route: 065
     Dates: start: 2016
  12. ONDANSETRON [Concomitant]
     Active Substance: ONDANSETRON
     Indication: Supportive care
  13. METOCLOPRAMIDE [Concomitant]
     Active Substance: METOCLOPRAMIDE
     Indication: Premedication
     Dosage: UNK
     Route: 065
  14. FLUOROURACIL SODIUM [Concomitant]
     Active Substance: FLUOROURACIL SODIUM
     Indication: Hormone receptor positive breast cancer
     Dosage: 500 MILLIGRAM/SQ. METER, 2 CYCLES
     Dates: start: 2016

REACTIONS (7)
  - Hyponatraemia [Recovered/Resolved]
  - Inappropriate antidiuretic hormone secretion [Recovered/Resolved]
  - Drug interaction [Recovered/Resolved]
  - Aphasia [Recovered/Resolved]
  - Seizure [Recovered/Resolved]
  - Vomiting [Recovered/Resolved]
  - Constipation [Recovered/Resolved]

NARRATIVE: CASE EVENT DATE: 20160101
